FAERS Safety Report 24316695 (Version 1)
Quarter: 2024Q3

REPORT INFORMATION
  Report Type: Spontaneous
  Country: JP (occurrence: None)
  Receive Date: 20240913
  Receipt Date: 20240913
  Transmission Date: 20241017
  Serious: Yes (Death)
  Sender: ASTRAZENECA
  Company Number: 2024A208018

PATIENT
  Sex: Male

DRUGS (1)
  1. ONDEXXYA [Suspect]
     Active Substance: ANDEXANET ALFA
     Dosage: DOSE UNKNOWN
     Route: 042
     Dates: start: 20230819, end: 20230819

REACTIONS (1)
  - Cerebral artery embolism [Fatal]

NARRATIVE: CASE EVENT DATE: 20230902
